FAERS Safety Report 18239133 (Version 1)
Quarter: 2020Q3

REPORT INFORMATION
  Report Type: Spontaneous
  Country: IT (occurrence: IT)
  Receive Date: 20200907
  Receipt Date: 20200907
  Transmission Date: 20201103
  Serious: Yes (Other)
  Sender: FDA-Public Use
  Company Number: NVSC2020IT244683

PATIENT
  Age: 61 Year
  Sex: Male

DRUGS (3)
  1. OSELTAMIVIR [Concomitant]
     Active Substance: OSELTAMIVIR
     Indication: INFLUENZA
     Dosage: 75 MG, BID
     Route: 048
  2. CEFTOBIPROLE [Suspect]
     Active Substance: CEFTOBIPROLE
     Indication: INFLUENZA
     Dosage: 500 MG, TID
     Route: 042
  3. CLARITHROMYCIN. [Suspect]
     Active Substance: CLARITHROMYCIN
     Indication: INFLUENZA
     Dosage: 500 MG, BID
     Route: 048

REACTIONS (2)
  - Bronchopulmonary aspergillosis [Recovering/Resolving]
  - Product use in unapproved indication [Unknown]
